FAERS Safety Report 25750058 (Version 2)
Quarter: 2025Q3

REPORT INFORMATION
  Report Type: Spontaneous
  Country: US (occurrence: US)
  Receive Date: 20250902
  Receipt Date: 20250909
  Transmission Date: 20251020
  Serious: Yes (Hospitalization, Disabling)
  Sender: MACLEODS
  Company Number: US-MACLEODS PHARMA-MAC2025054988

PATIENT

DRUGS (1)
  1. ATORVASTATIN [Suspect]
     Active Substance: ATORVASTATIN
     Indication: Product used for unknown indication
     Route: 065

REACTIONS (4)
  - Muscle atrophy [Recovering/Resolving]
  - Fall [Recovering/Resolving]
  - Immune-mediated myositis [Recovering/Resolving]
  - Rhabdomyolysis [Recovering/Resolving]
